FAERS Safety Report 10700653 (Version 1)
Quarter: 2015Q1

REPORT INFORMATION
  Report Type: Spontaneous
  Country: US (occurrence: None)
  Receive Date: 20150108
  Receipt Date: 20150108
  Transmission Date: 20150721
  Serious: No
  Sender: FDA-Public Use
  Company Number: None

PATIENT
  Age: 59 Year
  Sex: Male
  Weight: 170.9 kg

DRUGS (1)
  1. SUTENT [Suspect]
     Active Substance: SUNITINIB MALATE
     Indication: RENAL CELL CARCINOMA
     Route: 048
     Dates: start: 201407

REACTIONS (24)
  - Nausea [None]
  - Haemorrhage [None]
  - Abdominal discomfort [None]
  - Abdominal pain [None]
  - Constipation [None]
  - Skin hypertrophy [None]
  - Skin disorder [None]
  - Pain in extremity [None]
  - Epistaxis [None]
  - Decreased appetite [None]
  - Pyrexia [None]
  - Diarrhoea [None]
  - Stomatitis [None]
  - Dry skin [None]
  - Rash [None]
  - Dysgeusia [None]
  - Fatigue [None]
  - Asthenia [None]
  - Blister [None]
  - Peripheral swelling [None]
  - Cough [None]
  - Dyspnoea [None]
  - Vomiting [None]
  - Laceration [None]

NARRATIVE: CASE EVENT DATE: 201407
